FAERS Safety Report 8061977-9 (Version None)
Quarter: 2012Q1

REPORT INFORMATION
  Report Type: 
  Country: None (occurrence: None)
  Receive Date: 20120117
  Receipt Date: 20120109
  Transmission Date: 20120608
  Serious: Yes (Hospitalization)
  Sender: FDA-Public Use
  Company Number: 2012MA000591

PATIENT

DRUGS (3)
  1. DOXORUBICIN HCL [Concomitant]
  2. CYCLOPHOSPHAMIDE [Concomitant]
  3. PACLITAXEL [Suspect]
     Indication: BREAST CANCER
     Dosage: QW;TRPL
     Route: 064

REACTIONS (7)
  - NEOPLASM PROGRESSION [None]
  - MATERNAL EXPOSURE DURING PREGNANCY [None]
  - BREAST CANCER [None]
  - MATERNAL DRUGS AFFECTING FOETUS [None]
  - PREMATURE DELIVERY [None]
  - CAESAREAN SECTION [None]
  - OLIGOHYDRAMNIOS [None]
